FAERS Safety Report 15184057 (Version 1)
Quarter: 2018Q3

REPORT INFORMATION
  Report Type: Report from Study
  Country: None (occurrence: SG)
  Receive Date: 20180723
  Receipt Date: 20180723
  Transmission Date: 20181010
  Serious: Yes (Disabling)
  Sender: FDA-Public Use
  Company Number: SG-ABBVIE-18P-141-2424808-00

PATIENT
  Sex: Male
  Weight: 68 kg

DRUGS (1)
  1. GLECAPREVIR/PIBRENTASVIR [Suspect]
     Active Substance: GLECAPREVIR\PIBRENTASVIR
     Indication: HEPATITIS C
     Dosage: 100/40 MG PER TAB
     Route: 048
     Dates: start: 20180223

REACTIONS (1)
  - Abnormal behaviour [Recovered/Resolved with Sequelae]
